FAERS Safety Report 8803114 (Version 2)
Quarter: 2015Q3

REPORT INFORMATION
  Report Type: Report from Study
  Country: US (occurrence: US)
  Receive Date: 20120924
  Receipt Date: 20150706
  Transmission Date: 20151125
  Serious: Yes (Death)
  Sender: FDA-Public Use
  Company Number: US-ROCHE-1096288

PATIENT
  Sex: Female

DRUGS (4)
  1. CPT-11 [Concomitant]
     Active Substance: IRINOTECAN
  2. AVASTIN [Suspect]
     Active Substance: BEVACIZUMAB
     Indication: MALIGNANT RESPIRATORY TRACT NEOPLASM
     Route: 042
  3. TEMODAR [Concomitant]
     Active Substance: TEMOZOLOMIDE
  4. AVASTIN [Suspect]
     Active Substance: BEVACIZUMAB
     Indication: LUNG NEOPLASM MALIGNANT

REACTIONS (2)
  - Death [Fatal]
  - Off label use [Unknown]
